FAERS Safety Report 6126828-8 (Version None)
Quarter: 2009Q1

REPORT INFORMATION
  Report Type: 
  Country: None (occurrence: None)
  Receive Date: 20090320
  Receipt Date: 20090305
  Transmission Date: 20090719
  Serious: Yes (Hospitalization)
  Sender: FDA-Public Use
  Company Number: US-ROCHE-617367

PATIENT
  Sex: Male

DRUGS (13)
  1. PEG-INTERFERON ALFA 2A (RO 25-8310) [Suspect]
     Indication: HEPATITIS C
     Route: 058
     Dates: start: 20090107
  2. RIBAVIRIN [Suspect]
     Indication: HEPATITIS C
     Route: 048
     Dates: start: 20090107
  3. VX-950 [Suspect]
     Indication: HEPATITIS C
     Route: 048
     Dates: start: 20090107, end: 20090219
  4. ALBUTEROL [Concomitant]
     Indication: ASTHMA
     Dates: start: 19740101
  5. COMBIVENT [Concomitant]
     Indication: ASTHMA
     Dates: start: 20050101
  6. FLUOXETINE [Concomitant]
     Indication: BIPOLAR DISORDER
     Dates: start: 20050101
  7. ALPRAZOLAM [Concomitant]
     Indication: BIPOLAR DISORDER
     Dates: start: 20050101
  8. GEODON [Concomitant]
     Indication: BIPOLAR DISORDER
  9. BENZTROPINE MESYLATE [Concomitant]
  10. DOCUSATE [Concomitant]
     Indication: CONSTIPATION
  11. FLONASE [Concomitant]
     Indication: RHINITIS
  12. PERCOCET [Concomitant]
  13. AMOXICILLIN [Concomitant]
     Indication: PROPHYLAXIS

REACTIONS (3)
  - DYSPNOEA [None]
  - JOINT DISLOCATION [None]
  - PRODUCTIVE COUGH [None]
